FAERS Safety Report 14241355 (Version 4)
Quarter: 2018Q1

REPORT INFORMATION
  Report Type: Report from Study
  Country: US (occurrence: US)
  Receive Date: 20171130
  Receipt Date: 20180125
  Transmission Date: 20180508
  Serious: Yes (Life-Threatening, Hospitalization)
  Sender: FDA-Public Use
  Company Number: US-ROCHE-2030143

PATIENT
  Age: 14 Year
  Sex: Female
  Weight: 29.51 kg

DRUGS (9)
  1. PULMOZYME [Suspect]
     Active Substance: DORNASE ALFA
     Indication: ACUTE RESPIRATORY FAILURE
     Dosage: 1MG/ML, 1 AMPULE VIA NEB.
     Route: 055
     Dates: start: 20150407
  2. PULMOZYME [Suspect]
     Active Substance: DORNASE ALFA
     Indication: SPUTUM ABNORMAL
     Route: 055
  3. PULMOZYME [Suspect]
     Active Substance: DORNASE ALFA
     Indication: TRACHEOSTOMY
     Dosage: WHATEVER COMES IN THE VIAL
     Route: 055
  4. MIRALAX [Concomitant]
     Active Substance: POLYETHYLENE GLYCOL 3350
     Route: 048
     Dates: start: 20150519
  5. PULMOZYME [Suspect]
     Active Substance: DORNASE ALFA
     Indication: PNEUMOTHORAX
  6. BENADRYL [Concomitant]
     Active Substance: DIPHENHYDRAMINE HYDROCHLORIDE
     Route: 048
     Dates: start: 20150519
  7. PULMOZYME [Suspect]
     Active Substance: DORNASE ALFA
     Indication: MECHANICAL VENTILATION
  8. PULMOZYME [Suspect]
     Active Substance: DORNASE ALFA
     Indication: QUADRIPLEGIA
     Route: 055
     Dates: end: 201711
  9. COLACE [Concomitant]
     Active Substance: DOCUSATE SODIUM
     Route: 048
     Dates: start: 20150519

REACTIONS (4)
  - Intentional product use issue [Unknown]
  - Pneumonia [Not Recovered/Not Resolved]
  - Off label use [Unknown]
  - Nephrolithiasis [Unknown]

NARRATIVE: CASE EVENT DATE: 20171001
